FAERS Safety Report 7911318-X (Version None)
Quarter: 2011Q4

REPORT INFORMATION
  Report Type: 
  Country: None (occurrence: None)
  Receive Date: 20111114
  Receipt Date: 20111103
  Transmission Date: 20120403
  Serious: Yes (Hospitalization)
  Sender: FDA-Public Use
  Company Number: GB-RANBAXY-2011R1-50205

PATIENT

DRUGS (5)
  1. ACETAMINOPHEN AND CODEINE PHOSPHATE [Concomitant]
     Indication: SCIATICA
     Dosage: 1 DF, QID, 8/500 QDS
     Route: 048
  2. NAPROXEN [Suspect]
     Indication: SCIATICA
     Dosage: 400 MG, TID
     Route: 048
     Dates: start: 20110226, end: 20110228
  3. AMLODIPINE [Concomitant]
     Indication: HYPERTENSION
     Dosage: 15 MG, QD
     Route: 048
  4. BENDROFLUMETHIAZIDE [Concomitant]
     Indication: HYPERTENSION
     Dosage: 5 MG, QD
     Route: 048
  5. NAPROXEN [Suspect]
     Indication: SCIATICA
     Dosage: 250 MG, TID
     Route: 048
     Dates: start: 20110225, end: 20110228

REACTIONS (2)
  - HAEMATEMESIS [None]
  - GASTROINTESTINAL HAEMORRHAGE [None]
